FAERS Safety Report 14385096 (Version 1)
Quarter: 2018Q1

REPORT INFORMATION
  Report Type: Other
  Country: US (occurrence: US)
  Receive Date: 20180115
  Receipt Date: 20180115
  Transmission Date: 20180509
  Serious: Yes (Death)
  Sender: FDA-Public Use
  Company Number: US-OSMOTICA_PHARMACEUTICAL_US_LLC-POI0573201800024

PATIENT
  Age: 76 Year
  Sex: Female

DRUGS (9)
  1. DILTIAZEM. [Suspect]
     Active Substance: DILTIAZEM
     Dates: end: 2016
  2. NIFEDIPINE EXTENDED-RELEASE TABLETS [Suspect]
     Active Substance: NIFEDIPINE
     Dates: end: 2016
  3. CLONIDINE. [Suspect]
     Active Substance: CLONIDINE
     Dates: end: 2016
  4. CLORAZEPATE [Suspect]
     Active Substance: CLORAZEPATE DIPOTASSIUM
     Dates: end: 2016
  5. METOPROLOL. [Suspect]
     Active Substance: METOPROLOL
     Dates: end: 2016
  6. TERAZOSIN [Suspect]
     Active Substance: TERAZOSIN\TERAZOSIN HYDROCHLORIDE
     Dates: end: 2016
  7. CARVEDILOL. [Suspect]
     Active Substance: CARVEDILOL
     Dates: end: 2016
  8. HYDRALAZINE [Suspect]
     Active Substance: HYDRALAZINE HYDROCHLORIDE
     Dates: end: 2016
  9. ISOSORBIDE MONONITRATE. [Suspect]
     Active Substance: ISOSORBIDE MONONITRATE
     Dates: end: 2016

REACTIONS (1)
  - Medication error [Fatal]

NARRATIVE: CASE EVENT DATE: 2016
